FAERS Safety Report 23429711 (Version 2)
Quarter: 2024Q1

REPORT INFORMATION
  Report Type: Spontaneous
  Country: GB (occurrence: GB)
  Receive Date: 20240122
  Receipt Date: 20240129
  Transmission Date: 20240410
  Serious: Yes (Other)
  Sender: FDA-Public Use
  Company Number: None

PATIENT
  Age: 71 Year
  Sex: Female
  Weight: 60 kg

DRUGS (11)
  1. DOXYCYCLINE [Suspect]
     Active Substance: DOXYCYCLINE
     Indication: Ill-defined disorder
     Dosage: HAS 5 DAY COURSE TO MAKE UP TO 7 DAY COURSE
     Dates: start: 20240116
  2. AMOXICILLIN [Concomitant]
     Active Substance: AMOXICILLIN
     Indication: Ill-defined disorder
     Dosage: 1 DF, 3X/DAY
     Dates: start: 20240111
  3. CITALOPRAM [Concomitant]
     Active Substance: CITALOPRAM HYDROBROMIDE
     Indication: Ill-defined disorder
     Dosage: EACH MORNING, 1X/DAY
     Dates: start: 20231010
  4. DIAZEPAM [Concomitant]
     Active Substance: DIAZEPAM
     Indication: Ill-defined disorder
     Dosage: UNK UNK, 1X/DAY
     Dates: start: 20231010
  5. DIAZEPAM [Concomitant]
     Active Substance: DIAZEPAM
     Indication: Anxiety
  6. OMEPRAZOLE [Concomitant]
     Active Substance: OMEPRAZOLE
     Indication: Ill-defined disorder
     Dosage: 1X/DAY
     Dates: start: 20231010
  7. ACETAMINOPHEN [Concomitant]
     Active Substance: ACETAMINOPHEN
     Indication: Ill-defined disorder
     Dosage: 1 OR 2, 4X/DAY
     Dates: start: 20231010
  8. PREDNISOLONE [Concomitant]
     Active Substance: PREDNISOLONE
     Indication: Ill-defined disorder
     Dosage: TAKE SIX TABLETS ALL TOGETHER ONCE A DAY FOR 5 ...
     Dates: start: 20240111, end: 20240116
  9. ALBUTEROL [Concomitant]
     Active Substance: ALBUTEROL
     Indication: Ill-defined disorder
     Dosage: INHALE ONE TO TWO PUFFS UP TO 4X/DAY
     Dates: start: 20240104
  10. MORPHINE [Concomitant]
     Active Substance: MORPHINE
     Indication: Ill-defined disorder
     Dosage: TAKE ONE TWICE TIMES PER DAY
     Dates: start: 20231010
  11. SIMVASTATIN [Concomitant]
     Active Substance: SIMVASTATIN
     Indication: Ill-defined disorder
     Dosage: AT NIGHT 1X/DAY
     Dates: start: 20231010

REACTIONS (2)
  - Glossitis [Recovering/Resolving]
  - Glossodynia [Recovering/Resolving]

NARRATIVE: CASE EVENT DATE: 20240116
